FAERS Safety Report 17699046 (Version 1)
Quarter: 2020Q2

REPORT INFORMATION
  Report Type: Spontaneous
  Country: US (occurrence: US)
  Receive Date: 20200422
  Receipt Date: 20200422
  Transmission Date: 20200714
  Serious: No
  Sender: FDA-Public Use
  Company Number: None

PATIENT
  Sex: Male

DRUGS (1)
  1. NORDITROPIN [Suspect]
     Active Substance: SOMATROPIN
     Indication: HYPOPITUITARISM
     Dosage: ?          OTHER STRENGTH:15MG/1.5M;?
     Route: 058
     Dates: start: 20180424

REACTIONS (4)
  - Mass [None]
  - Hand deformity [None]
  - Headache [None]
  - Arthralgia [None]
